FAERS Safety Report 8960018 (Version 1)
Quarter: 2012Q4

REPORT INFORMATION
  Report Type: 
  Country: AT (occurrence: AT)
  Receive Date: 20121212
  Receipt Date: 20121212
  Transmission Date: 20130627
  Serious: Yes (Other)
  Sender: FDA-Public Use
  Company Number: AT-MEDICIS-2012P1066198

PATIENT
  Age: 28 Year
  Sex: Female

DRUGS (2)
  1. THEOPHYLLINE [Suspect]
  2. PARACETAMOL [Concomitant]

REACTIONS (4)
  - Subdural haematoma [Recovered/Resolved]
  - VIth nerve paralysis [Recovered/Resolved]
  - Cerebral venous thrombosis [Recovered/Resolved]
  - Off label use [Unknown]
